FAERS Safety Report 13193507 (Version 6)
Quarter: 2017Q2

REPORT INFORMATION
  Report Type: Report from Study
  Country: None (occurrence: BE)
  Receive Date: 20170207
  Receipt Date: 20170404
  Transmission Date: 20170830
  Serious: Yes (Death, Hospitalization)
  Sender: FDA-Public Use
  Company Number: BE-ABBVIE-17P-013-1864971-00

PATIENT
  Sex: Male

DRUGS (15)
  1. DUODOPA [Suspect]
     Active Substance: CARBIDOPA\LEVODOPA
     Dosage: DOSES CONTINUOUSLY MONITORED AND ADAPTED
     Route: 050
     Dates: start: 20131004, end: 20160728
  2. PROLOPA  DISP [Concomitant]
     Dosage: 1/DAY + EVENTUALLY BEFORE STARTING PUMP, FORM STRENGTH: 100MG/25MG
  3. REMERGON [Concomitant]
     Active Substance: MIRTAZAPINE
     Indication: PRODUCT USED FOR UNKNOWN INDICATION
  4. TETRAZEPAM [Concomitant]
     Active Substance: TETRAZEPAM
     Indication: PRODUCT USED FOR UNKNOWN INDICATION
  5. DUODOPA [Suspect]
     Active Substance: CARBIDOPA\LEVODOPA
     Indication: PARKINSON^S DISEASE
     Dosage: AM=5ML, CD=3.5ML/HR DURING 16HRS, ED=1.5ML, ND=3ML/HR DURING 8HRS
     Route: 050
     Dates: start: 20130930, end: 20131004
  6. MIRAPEXIN [Concomitant]
     Active Substance: PRAMIPEXOLE
     Indication: PRODUCT USED FOR UNKNOWN INDICATION
     Dosage: 0.18MG 3TIMES/DAY + 1.05MG ONCE A DAY
  7. EMSELEX [Concomitant]
     Active Substance: DARIFENACIN HYDROBROMIDE
     Indication: PRODUCT USED FOR UNKNOWN INDICATION
     Dosage: FORM STRENGTH: 5MG TILL 7.5MG
  8. DUODOPA [Suspect]
     Active Substance: CARBIDOPA\LEVODOPA
     Dosage: AM=2ML, CD=4.6ML/HR DURING 16HRS , ED=2ML, ND=4ML/HR DURING 8HRS
     Route: 050
     Dates: start: 20160728
  9. PROLOPA [Concomitant]
     Active Substance: BENSERAZIDE\LEVODOPA
     Indication: PRODUCT USED FOR UNKNOWN INDICATION
     Dosage: FORM STRENGTH: 200MG/50MG, UNIT DOSE: 0.25 UNIT 4 X/DAY , 0.5UNIT PRN(RESCUE MEDICATION)
  10. MIRAPEXIN [Concomitant]
     Active Substance: PRAMIPEXOLE
  11. MIRAPEXIN [Concomitant]
     Active Substance: PRAMIPEXOLE
     Dates: start: 20140528
  12. SEDACID [Concomitant]
     Indication: PRODUCT USED FOR UNKNOWN INDICATION
  13. SEROQUEL [Concomitant]
     Active Substance: QUETIAPINE FUMARATE
     Indication: PRODUCT USED FOR UNKNOWN INDICATION
  14. PROLOPA  DISP [Concomitant]
     Indication: PRODUCT USED FOR UNKNOWN INDICATION
     Dosage: FORM STRENGTH: 100MG/25MG
  15. EMCONCOR [Concomitant]
     Active Substance: BISOPROLOL FUMARATE
     Indication: PRODUCT USED FOR UNKNOWN INDICATION

REACTIONS (4)
  - Confusional state [Unknown]
  - Pneumonia [Fatal]
  - Device dislocation [Not Recovered/Not Resolved]
  - Device dislocation [Unknown]
